FAERS Safety Report 21261123 (Version 1)
Quarter: 2022Q3

REPORT INFORMATION
  Report Type: Spontaneous
  Country: None (occurrence: US)
  Receive Date: 20220826
  Receipt Date: 20220826
  Transmission Date: 20221027
  Serious: Yes (Life-Threatening)
  Sender: FDA-Public Use
  Company Number: US-AnazaoHealth Corporation-2132293

PATIENT
  Age: 47 Year
  Sex: Female
  Weight: 86.364 kg

DRUGS (14)
  1. ESTRADIOL [Suspect]
     Active Substance: ESTRADIOL
     Indication: Hormone replacement therapy
     Route: 058
  2. TESTOSTERONE [Concomitant]
     Active Substance: TESTOSTERONE
     Route: 058
  3. TESTOSTERONE [Concomitant]
     Active Substance: TESTOSTERONE
     Route: 058
  4. DULOXETINE [Concomitant]
     Active Substance: DULOXETINE
     Route: 048
  5. LOSARTAN [Concomitant]
     Active Substance: LOSARTAN
     Route: 048
  6. PROGESTERONE [Concomitant]
     Active Substance: PROGESTERONE
  7. VENLAFAXINE [Concomitant]
     Active Substance: VENLAFAXINE HYDROCHLORIDE
  8. GABAPENTIN [Concomitant]
     Active Substance: GABAPENTIN
  9. Vitamin ADK [Concomitant]
  10. THYROID [Concomitant]
     Active Substance: LEVOTHYROXINE\LIOTHYRONINE
  11. DIM [Concomitant]
  12. ALLERGY TABLETS [Concomitant]
     Active Substance: DIPHENHYDRAMINE HYDROCHLORIDE
  13. MAGNESIUM [Concomitant]
     Active Substance: MAGNESIUM
  14. TESTOSTERONE [Concomitant]
     Active Substance: TESTOSTERONE
     Route: 058
     Dates: start: 20220329

REACTIONS (1)
  - Breast cancer [Unknown]

NARRATIVE: CASE EVENT DATE: 20220812
